FAERS Safety Report 4533444-8 (Version None)
Quarter: 2004Q4

REPORT INFORMATION
  Report Type: 
  Country: None (occurrence: None)
  Receive Date: 20041221
  Receipt Date: 20041210
  Transmission Date: 20050328
  Serious: Yes (Disabling)
  Sender: FDA-Public Use
  Company Number: US-MERCK-0412USA01367

PATIENT
  Age: 26 Year
  Sex: Male

DRUGS (2)
  1. SINGULAIR [Suspect]
     Indication: ASTHMA
     Route: 048
     Dates: start: 20040901
  2. ADVAIR DISKUS 100/50 [Concomitant]
     Route: 065

REACTIONS (3)
  - EYE DISORDER [None]
  - RETINAL DEGENERATION [None]
  - VISUAL ACUITY REDUCED [None]
